FAERS Safety Report 8297581-7 (Version None)
Quarter: 2012Q2

REPORT INFORMATION
  Report Type: 
  Country: None (occurrence: None)
  Receive Date: 20120419
  Receipt Date: 20120411
  Transmission Date: 20120825
  Serious: Yes (Other)
  Sender: FDA-Public Use
  Company Number: US-CELGENEUS-163-21880-11073033

PATIENT
  Age: 73 Year
  Sex: Male
  Weight: 86.64 kg

DRUGS (7)
  1. REVLIMID [Suspect]
     Indication: MULTIPLE MYELOMA
     Dosage: 25 MILLIGRAM
     Route: 048
     Dates: start: 20100614, end: 20101018
  2. WHITE BLOOD CELL FACTOR [Concomitant]
     Route: 065
  3. ASPIRIN [Concomitant]
     Route: 065
  4. DEXAMETHASONE [Concomitant]
     Indication: MULTIPLE MYELOMA
     Dosage: LOW DOSE
     Route: 065
     Dates: start: 20100614, end: 20101018
  5. BISPHOSPHONATE [Concomitant]
     Route: 065
  6. PREDNISONE TAB [Concomitant]
     Route: 065
     Dates: start: 20110201, end: 20120101
  7. REVLIMID [Suspect]
     Dosage: 20 MILLIGRAM
     Route: 048
     Dates: start: 20110201, end: 20120101

REACTIONS (2)
  - CARDIOVASCULAR DISORDER [None]
  - RENAL IMPAIRMENT [None]
